FAERS Safety Report 16200116 (Version 3)
Quarter: 2019Q2

REPORT INFORMATION
  Report Type: Spontaneous
  Country: US (occurrence: US)
  Receive Date: 20190415
  Receipt Date: 20190619
  Transmission Date: 20190711
  Serious: No
  Sender: FDA-Public Use
  Company Number: US-SA-2019SA103641

PATIENT
  Age: 11 Year
  Sex: Female

DRUGS (1)
  1. DUPIXENT [Suspect]
     Active Substance: DUPILUMAB
     Dosage: 300 MG, QM
     Route: 058
     Dates: start: 20181228

REACTIONS (7)
  - Skin exfoliation [Unknown]
  - Therapeutic response decreased [Unknown]
  - Off label use [Unknown]
  - Dermatitis atopic [Unknown]
  - Product use issue [Unknown]
  - Erythema [Unknown]
  - Dry skin [Unknown]
